FAERS Safety Report 26128772 (Version 1)
Quarter: 2025Q4

REPORT INFORMATION
  Report Type: Spontaneous
  Country: US (occurrence: US)
  Receive Date: 20251208
  Receipt Date: 20251208
  Transmission Date: 20260118
  Serious: Yes (Life-Threatening, Hospitalization, Other)
  Sender: STRIDES
  Company Number: US-STRIDES ARCOLAB LIMITED-2025SP014977

PATIENT
  Sex: Female

DRUGS (1)
  1. PHENOBARBITAL [Suspect]
     Active Substance: PHENOBARBITAL
     Indication: Product used for unknown indication
     Dosage: 15 GRAM, TOTAL
     Route: 065

REACTIONS (3)
  - Coma [Unknown]
  - Suicide attempt [Unknown]
  - Intentional overdose [Unknown]
